FAERS Safety Report 23813138 (Version 1)
Quarter: 2024Q2

REPORT INFORMATION
  Report Type: Spontaneous
  Country: US (occurrence: US)
  Receive Date: 20240503
  Receipt Date: 20240503
  Transmission Date: 20240716
  Serious: Yes (Hospitalization)
  Sender: FDA-Public Use
  Company Number: US-DRL-USA-LIT/USA/24/0006496

PATIENT
  Age: 35 Year
  Sex: Female

DRUGS (8)
  1. PROPOFOL [Suspect]
     Active Substance: PROPOFOL
     Indication: Seizure
  2. LEVETIRACETAM [Suspect]
     Active Substance: LEVETIRACETAM
     Indication: Seizure
  3. VALPROIC ACID [Suspect]
     Active Substance: VALPROIC ACID
     Indication: Seizure
  4. LACOSAMIDE [Concomitant]
     Active Substance: LACOSAMIDE
     Indication: Seizure
  5. PERAMPANEL [Concomitant]
     Active Substance: PERAMPANEL
     Indication: Seizure
  6. PHENOBARBITAL [Concomitant]
     Active Substance: PHENOBARBITAL
     Indication: Seizure
  7. MIDAZOLAM [Concomitant]
     Active Substance: MIDAZOLAM
     Indication: Seizure
  8. CLONAZEPAM [Concomitant]
     Active Substance: CLONAZEPAM
     Indication: Seizure

REACTIONS (3)
  - Drug ineffective [Unknown]
  - Disease progression [Unknown]
  - Product use in unapproved indication [Unknown]
